FAERS Safety Report 13124072 (Version 2)
Quarter: 2017Q1

REPORT INFORMATION
  Report Type: Spontaneous
  Country: DE (occurrence: DE)
  Receive Date: 20170118
  Receipt Date: 20170125
  Transmission Date: 20170428
  Serious: Yes (Death, Hospitalization, Other)
  Sender: FDA-Public Use
  Company Number: DE-009507513-1701DEU006289

PATIENT
  Age: 99 Year
  Sex: Female

DRUGS (2)
  1. JANUVIA [Suspect]
     Active Substance: SITAGLIPTIN PHOSPHATE
     Indication: BLOOD GLUCOSE INCREASED
     Dosage: 1 DF, ^1-0-0^
     Route: 048
     Dates: start: 201401
  2. JANUVIA [Suspect]
     Active Substance: SITAGLIPTIN PHOSPHATE
     Dosage: THRICE DAILY^1-1-1^
     Route: 048
     Dates: start: 2016, end: 20170106

REACTIONS (6)
  - Product use issue [Unknown]
  - Rib fracture [Unknown]
  - Drug prescribing error [Unknown]
  - Cardiac failure [Unknown]
  - Fluid retention [Unknown]
  - Death [Fatal]

NARRATIVE: CASE EVENT DATE: 2016
